FAERS Safety Report 6782810-9 (Version None)
Quarter: 2010Q2

REPORT INFORMATION
  Report Type: 
  Country: None (occurrence: None)
  Receive Date: 20100616
  Receipt Date: 20100602
  Transmission Date: 20101027
  Serious: Yes (Hospitalization)
  Sender: FDA-Public Use
  Company Number: 1000007682

PATIENT
  Age: 74 Year
  Sex: Male
  Weight: 123 kg

DRUGS (11)
  1. ESCITALOPRAM [Suspect]
     Indication: DEPRESSION
     Dosage: 10 MG (10MG, 1 IN 1 D) , ORAL
     Route: 048
     Dates: start: 20081101, end: 20090325
  2. DIPIPERON (TABLETS) [Suspect]
     Indication: RESTLESSNESS
     Dosage: 3 DOSAGE FORMS (3 DOSAGE FORMS, 1 IN
  3. CLEXANE (0.8 MILLIGRAM, INJECTION) [Concomitant]
  4. CONCOR (2.5 MILLIGRAM, TABLETS) [Concomitant]
  5. FERRO SANOL (40MILLIGRAM, TABLETS) [Concomitant]
  6. FOLSAN (0.4 MILLIGRAM, TABLETS) [Concomitant]
  7. LISINOPRIL (5MILLIGRAM, TABLETS) [Concomitant]
  8. METFORMIN (500MILLIGRAM, TABLETS) [Concomitant]
  9. VITAMIN B (1 DOSAGE FORMS, TABLETS) [Concomitant]
  10. TIAPRIDE (100 MILLIGRAM TABLETS,) [Suspect]
     Indication: MOVEMENT DISORDER
     Dosage: 300MG (100MG, 3 IN 1 D), ORAL
     Route: 048
     Dates: start: 20090101, end: 20090325
  11. RISPERDAL [Suspect]
     Dosage: I MG (0.5 MG, 2 IN 1 D)
     Dates: end: 20090325

REACTIONS (6)
  - ABDOMINAL PAIN UPPER [None]
  - BLOOD CREATINE PHOSPHOKINASE INCREASED [None]
  - DEHYDRATION [None]
  - DISTURBANCE IN ATTENTION [None]
  - MYOGLOBIN BLOOD INCREASED [None]
  - URINARY TRACT INFECTION [None]
